APPROVED DRUG PRODUCT: MEMANTINE HYDROCHLORIDE
Active Ingredient: MEMANTINE HYDROCHLORIDE
Strength: 28MG
Dosage Form/Route: CAPSULE, EXTENDED RELEASE;ORAL
Application: A203293 | Product #004 | TE Code: AB
Applicant: ZYDUS PHARMACEUTICALS USA INC
Approved: Aug 3, 2017 | RLD: No | RS: Yes | Type: RX